FAERS Safety Report 7726088-8 (Version None)
Quarter: 2011Q3

REPORT INFORMATION
  Report Type: 
  Country: None (occurrence: None)
  Receive Date: 20110902
  Receipt Date: 20110826
  Transmission Date: 20111222
  Serious: Yes (Death)
  Sender: FDA-Public Use
  Company Number: JP-GENZYME-FLUD-1001360

PATIENT
  Sex: Female

DRUGS (14)
  1. ATG FRESENIUS [Suspect]
     Indication: ACUTE MYELOID LEUKAEMIA
  2. METHYLPREDNISOLONE [Concomitant]
     Indication: PROPHYLAXIS AGAINST GRAFT VERSUS HOST DISEASE
     Dosage: 1 MG/KG/QD,FROM DAY -4 TAPERING 3RD WEEK UNTIL DAY 30 USING SERUM INTERLEUKIN-2 RECEPTOR LEVEL
     Route: 042
  3. IMMUNE GLOBULIN NOS [Concomitant]
     Indication: PRODUCT USED FOR UNKNOWN INDICATION
     Dosage: MINIMUM DOSE OF 100 MG/KG, Q2W UNTIL DAY 100
     Route: 042
  4. FLUDARA [Suspect]
     Indication: STEM CELL TRANSPLANT
     Dosage: 30 MG/M2, QDX3, DAYS -6 TO -4
     Route: 042
  5. TACROLIMUS [Concomitant]
     Indication: PROPHYLAXIS AGAINST GRAFT VERSUS HOST DISEASE
     Dosage: 0.02 MG/KG/QD,CONTINUOUS INFUSION; TARGET BLOOD LEVEL 8-10 NG/ML UNTIL DAY 30; TAPERED UNTIL ABSENCE
     Route: 041
  6. CIPROFLOXACIN [Concomitant]
     Indication: ANTIBIOTIC PROPHYLAXIS
     Dosage: UNK
     Route: 048
  7. AMPHOTERICIN B [Concomitant]
     Indication: ANTIBIOTIC PROPHYLAXIS
     Dosage: UNK
     Route: 048
  8. ACYCLOVIR [Concomitant]
     Indication: ANTIVIRAL PROPHYLAXIS
     Dosage: 1000 MG, QD,FOR 5 WEEKS AFTER TRANSPLANTATION
     Route: 065
  9. FLUDARA [Suspect]
     Indication: ACUTE MYELOID LEUKAEMIA
  10. ATG FRESENIUS [Suspect]
     Indication: STEM CELL TRANSPLANT
     Dosage: 2 MG/KG, QD, DAY -4 TO -1
     Route: 065
  11. COTRIM [Concomitant]
     Indication: ANTIFUNGAL PROPHYLAXIS
     Dosage: UNK,FOR AT LEAST A YEAR
     Route: 065
  12. TACROLIMUS [Concomitant]
     Dosage: UNK BEFORE TRANSPLANTATION
     Route: 065
  13. GANCICLOVIR [Concomitant]
     Indication: ANTIVIRAL PROPHYLAXIS
     Dosage: 2.5 MG/KG, TID,FROM DAY -10 TO DAY -3
     Route: 065
  14. VANCOMYCIN [Concomitant]
     Indication: ANTIBIOTIC PROPHYLAXIS
     Dosage: UNK
     Route: 048

REACTIONS (1)
  - GRAFT VERSUS HOST DISEASE [None]
